FAERS Safety Report 7112726-X (Version None)
Quarter: 2010Q4

REPORT INFORMATION
  Report Type: 
  Country: None (occurrence: None)
  Receive Date: 20101119
  Receipt Date: 20101109
  Transmission Date: 20110411
  Serious: Yes (Disabling, Other)
  Sender: FDA-Public Use
  Company Number: PHHY2010US51594

PATIENT
  Sex: Female
  Weight: 63.492 kg

DRUGS (4)
  1. EXTAVIA [Suspect]
     Indication: MULTIPLE SCLEROSIS
     Dosage: 0.25 MG, QOD
     Route: 058
     Dates: start: 20100616
  2. TYLENOL (CAPLET) [Suspect]
     Dosage: PM
  3. VALIUM [Concomitant]
     Dosage: 5 MG, UNK
  4. IBUPROFEN [Concomitant]
     Dosage: 800 MG,  PM

REACTIONS (12)
  - BRONCHITIS [None]
  - CHILLS [None]
  - INJECTION SITE ERYTHEMA [None]
  - INSOMNIA [None]
  - LARYNGITIS [None]
  - MUSCLE TIGHTNESS [None]
  - NASOPHARYNGITIS [None]
  - PAIN [None]
  - PAIN IN EXTREMITY [None]
  - PYREXIA [None]
  - RESTLESSNESS [None]
  - TREMOR [None]
